FAERS Safety Report 8356271-2 (Version None)
Quarter: 2012Q2

REPORT INFORMATION
  Report Type: 
  Country: None (occurrence: None)
  Receive Date: 20120510
  Receipt Date: 20120426
  Transmission Date: 20120825
  Serious: Yes (Hospitalization)
  Sender: FDA-Public Use
  Company Number: JPI-P-021168

PATIENT
  Age: 36 Year
  Sex: Female

DRUGS (2)
  1. XYREM [Suspect]
     Indication: FIBROMYALGIA
     Dosage: 4.5;9 GM (2.25;4.5 GM, 2 IN 1 D), ORAL
     Route: 048
     Dates: start: 20110810
  2. XYREM [Suspect]
     Indication: FIBROMYALGIA
     Dosage: 4.5;9 GM (2.25;4.5 GM, 2 IN 1 D), ORAL
     Route: 048
     Dates: start: 20091209

REACTIONS (3)
  - ROAD TRAFFIC ACCIDENT [None]
  - BACK PAIN [None]
  - NECK PAIN [None]
